FAERS Safety Report 7048069-2 (Version None)
Quarter: 2010Q4

REPORT INFORMATION
  Report Type: 
  Country: None (occurrence: None)
  Receive Date: 20101015
  Receipt Date: 20101012
  Transmission Date: 20110411
  Serious: Yes (Hospitalization)
  Sender: FDA-Public Use
  Company Number: B0678886A

PATIENT
  Sex: Female
  Weight: 71 kg

DRUGS (10)
  1. AUGMENTIN '125' [Suspect]
     Indication: ANTIBIOTIC PROPHYLAXIS
     Route: 048
     Dates: start: 20100901, end: 20100904
  2. NEXIUM [Suspect]
     Indication: COLONOSCOPY
     Route: 048
     Dates: start: 20100825, end: 20100901
  3. ARIMIDEX [Concomitant]
     Indication: BREAST CANCER
     Dosage: 1MG PER DAY
     Route: 048
  4. HYPNOVEL [Concomitant]
     Route: 065
     Dates: start: 20100901, end: 20100901
  5. SUFENTA PRESERVATIVE FREE [Concomitant]
     Route: 065
     Dates: start: 20100901, end: 20100901
  6. PROPOFOL [Concomitant]
     Route: 065
     Dates: start: 20100901, end: 20100901
  7. CORTANCYL [Concomitant]
     Route: 065
     Dates: start: 20100824
  8. CORDARONE [Concomitant]
     Dosage: 1TAB PER DAY
     Route: 065
  9. PERFALGAN [Concomitant]
     Dosage: 1G FOUR TIMES PER DAY
     Route: 042
  10. FISH OIL [Concomitant]
     Indication: PREMEDICATION
     Route: 065
     Dates: start: 20100825

REACTIONS (6)
  - AGRANULOCYTOSIS [None]
  - BONE MARROW FAILURE [None]
  - FEBRILE BONE MARROW APLASIA [None]
  - FEBRILE NEUTROPENIA [None]
  - PANCYTOPENIA [None]
  - THROMBOCYTOPENIA [None]
